FAERS Safety Report 8496148-5 (Version None)
Quarter: 2012Q3

REPORT INFORMATION
  Report Type: 
  Country: None (occurrence: None)
  Receive Date: 20120709
  Receipt Date: 20120703
  Transmission Date: 20120928
  Serious: Yes (Death, Other)
  Sender: FDA-Public Use
  Company Number: MX-JNJFOC-20120614221

PATIENT

DRUGS (8)
  1. RITUXAN [Suspect]
     Indication: B-CELL LYMPHOMA
     Dosage: ON DAY 1
     Route: 042
  2. RADIATION THERAPY NOS [Suspect]
     Indication: B-CELL LYMPHOMA
     Dosage: 35 GY IN 20 FRACTIONS VER 4 WEEKS
     Route: 065
  3. DOXORUBICIN HCL [Suspect]
     Indication: B-CELL LYMPHOMA
     Dosage: DAY 1
     Route: 042
  4. FLUCONAZOLE [Concomitant]
     Route: 048
  5. PREDNISONE [Suspect]
     Indication: B-CELL LYMPHOMA
     Dosage: DAYS 1-5
     Route: 048
  6. BACTRIM [Concomitant]
     Route: 048
  7. CYCLOPHOSPHAMIDE [Suspect]
     Indication: B-CELL LYMPHOMA
     Dosage: DAY 1
     Route: 042
  8. VINCRISTINE [Suspect]
     Indication: B-CELL LYMPHOMA
     Dosage: DAY 1
     Route: 042

REACTIONS (3)
  - B-CELL LYMPHOMA [None]
  - LYMPHOMA [None]
  - GRANULOCYTOPENIA [None]
